FAERS Safety Report 7183018-8 (Version None)
Quarter: 2010Q4

REPORT INFORMATION
  Report Type: 
  Country: None (occurrence: None)
  Receive Date: 20101222
  Receipt Date: 20101217
  Transmission Date: 20110411
  Serious: No
  Sender: FDA-Public Use
  Company Number: US-PFIZER INC-2010174879

PATIENT
  Sex: Female
  Weight: 88.435 kg

DRUGS (9)
  1. LIPITOR [Suspect]
     Indication: BLOOD CHOLESTEROL INCREASED
     Dosage: 40 MG, DAILY
     Dates: start: 20100101
  2. METOPROLOL [Concomitant]
     Indication: HYPERTENSION
     Dosage: 100 MG, 2X/DAY
  3. CAPTOPRIL [Concomitant]
     Dosage: 50 MG, 2X/DAY
  4. GEMFIBROZIL [Concomitant]
     Dosage: 600 MG, 2X/DAY
  5. DILTIAZEM [Concomitant]
     Dosage: 360 MG, DAILY
  6. FUROSEMIDE [Concomitant]
     Indication: DIURETIC THERAPY
     Dosage: 40 MG, DAILY
  7. NITROGLYCERIN [Concomitant]
     Dosage: 0.4 MG, UNK
  8. ACETYLSALICYLIC ACID [Concomitant]
     Dosage: 300 MG, DAILY
  9. FISH OIL [Concomitant]
     Dosage: 1200 MG, 4X/DAY

REACTIONS (1)
  - BLOOD CHOLESTEROL INCREASED [None]
